FAERS Safety Report 6191267-0 (Version None)
Quarter: 2009Q2

REPORT INFORMATION
  Report Type: 
  Country: None (occurrence: None)
  Receive Date: 20090513
  Receipt Date: 20090513
  Transmission Date: 20091009
  Serious: No
  Sender: FDA-Public Use
  Company Number: None

PATIENT
  Age: 57 Year
  Sex: Female
  Weight: 63.5036 kg

DRUGS (1)
  1. CLARITHROMYCIN [Suspect]
     Dosage: 2 TABLETS EVERYDAY AFTER MEALS
     Dates: start: 20090217

REACTIONS (3)
  - DYSGEUSIA [None]
  - HALLUCINATION [None]
  - INSOMNIA [None]
